FAERS Safety Report 10377969 (Version 1)
Quarter: 2014Q1

REPORT INFORMATION
  Report Type: Spontaneous
  Country: US (occurrence: None)
  Receive Date: 20140306
  Receipt Date: 20140306
  Transmission Date: 20141002
  Serious: Yes (Hospitalization)
  Sender: FDA-Public Use
  Company Number: 163-21880-13013730

PATIENT
  Age: 63 Year
  Sex: Female

DRUGS (10)
  1. REVLIMID (LENALIDOMIDE) (25 MILLIGRAM, CAPSULES) [Suspect]
     Indication: PLASMA CELL MYELOMA
     Route: 048
     Dates: start: 20120409
  2. ACYCLOVIR (ACICLOVIR) (UNKNOWN) [Concomitant]
  3. IFEREX (IRON) (UNKNOWN) [Concomitant]
  4. DAPSONE (DAPSONE) (UNKNOWN) [Concomitant]
  5. RANITIDINE (RANITIDINE) (UNKNOWN) [Concomitant]
  6. VITAMIN D (ERGOCALCIFEROL) (UNKNOWN) [Concomitant]
  7. VITAMIN B6 (PYRIDOXINE HYDROCHLORIDE) (UNKNOWN) [Concomitant]
  8. FOLIC ACID (FOLIC ACID) (UNKNOWN) [Concomitant]
  9. GABAPENTIN (GABAPENTIN) (UNKNOWN) (GABAPENTIN) [Concomitant]
  10. SUCRALFATE (SUCRALFATE) (UNKNOWN) [Concomitant]

REACTIONS (3)
  - Pneumonia [None]
  - White blood cell count decreased [None]
  - Haemoglobin decreased [None]
